FAERS Safety Report 6890855-3 (Version None)
Quarter: 2010Q3

REPORT INFORMATION
  Report Type: 
  Country: None (occurrence: None)
  Receive Date: 20100731
  Receipt Date: 20090402
  Transmission Date: 20110219
  Serious: No
  Sender: FDA-Public Use
  Company Number: US-PFIZER INC-2008151922

PATIENT
  Sex: Male

DRUGS (2)
  1. LIPITOR [Suspect]
  2. CRESTOR [Suspect]

REACTIONS (2)
  - ADVERSE DRUG REACTION [None]
  - TREMOR [None]
